FAERS Safety Report 8008617-2 (Version None)
Quarter: 2011Q4

REPORT INFORMATION
  Report Type: 
  Country: None (occurrence: None)
  Receive Date: 20111227
  Receipt Date: 20111223
  Transmission Date: 20120403
  Serious: Yes (Disabling)
  Sender: FDA-Public Use
  Company Number: DE-SANOFI-AVENTIS-2011SA084253

PATIENT
  Age: 67 Year
  Sex: Male
  Weight: 82 kg

DRUGS (1)
  1. LOVENOX [Suspect]
     Indication: CARDIAC PACEMAKER INSERTION
     Dosage: 1
     Route: 058
     Dates: start: 20110324

REACTIONS (3)
  - GASTROINTESTINAL PAIN [None]
  - DIZZINESS [None]
  - NAUSEA [None]
